FAERS Safety Report 13462428 (Version 7)
Quarter: 2017Q3

REPORT INFORMATION
  Report Type: Report from Study
  Country: US (occurrence: US)
  Receive Date: 20170420
  Receipt Date: 20170829
  Transmission Date: 20171127
  Serious: Yes (Other)
  Sender: FDA-Public Use
  Company Number: US-PFIZER INC-2017122946

PATIENT
  Age: 61 Year
  Sex: Female

DRUGS (5)
  1. IBRANCE [Suspect]
     Active Substance: PALBOCICLIB
     Indication: BREAST CANCER
     Dosage: 125 MG, CYCLIC (3 WEEKS ON/1 WEEK OFF)
     Route: 048
     Dates: start: 20170307
  2. IBRANCE [Suspect]
     Active Substance: PALBOCICLIB
     Dosage: 100 MG, 1X/DAY
     Route: 048
     Dates: start: 2017, end: 20170710
  3. IBRANCE [Suspect]
     Active Substance: PALBOCICLIB
     Dosage: 75 MG, 1X/DAY
     Route: 048
     Dates: start: 20170721, end: 20170818
  4. IBRANCE [Suspect]
     Active Substance: PALBOCICLIB
     Dosage: 125 MG, 1X/DAY
     Route: 048
     Dates: start: 20170307, end: 20170428
  5. IBRANCE [Suspect]
     Active Substance: PALBOCICLIB
     Dosage: 100 MG, 1X/DAY
     Route: 048
     Dates: start: 20170512, end: 20170602

REACTIONS (13)
  - Bone pain [Recovering/Resolving]
  - Stomatitis [Unknown]
  - Decreased appetite [Recovering/Resolving]
  - Fatigue [Not Recovered/Not Resolved]
  - Neuropathy peripheral [Unknown]
  - Neoplasm progression [Unknown]
  - Epistaxis [Recovered/Resolved]
  - Dry skin [Not Recovered/Not Resolved]
  - Bone marrow failure [Recovering/Resolving]
  - Constipation [Recovering/Resolving]
  - White blood cell count decreased [Unknown]
  - Alopecia [Not Recovered/Not Resolved]
  - Dyspnoea exertional [Recovering/Resolving]

NARRATIVE: CASE EVENT DATE: 2017
